FAERS Safety Report 9127736 (Version 1)
Quarter: 2013Q1

REPORT INFORMATION
  Report Type: Spontaneous
  Country: US (occurrence: US)
  Receive Date: 20130228
  Receipt Date: 20130228
  Transmission Date: 20140127
  Serious: No
  Sender: FDA-Public Use
  Company Number: US-GLAXOSMITHKLINE-A0997514A

PATIENT
  Age: 87 Year
  Sex: Female

DRUGS (6)
  1. LAMICTAL [Suspect]
     Indication: PARTIAL SEIZURES
     Dosage: 25MG THREE TIMES PER DAY
     Route: 048
     Dates: start: 201112
  2. NEXIUM [Concomitant]
  3. RANITIDINE [Concomitant]
  4. FOLIC ACID [Concomitant]
  5. VITAMIN B 12 [Concomitant]
  6. VITAMINS [Concomitant]

REACTIONS (3)
  - Burning mouth syndrome [Not Recovered/Not Resolved]
  - Oral pain [Not Recovered/Not Resolved]
  - Dry mouth [Not Recovered/Not Resolved]
